FAERS Safety Report 7290123 (Version 5)
Quarter: 2012Q4

REPORT INFORMATION
  Report Type: 
  Country: JP (occurrence: JP)
  Receive Date: 20100223
  Receipt Date: 20121226
  Transmission Date: 20130627
  Serious: Yes (Other)
  Sender: FDA-Public Use
  Company Number: PHHY2010JP08196

PATIENT
  Sex: Male

DRUGS (4)
  1. NEORAL [Suspect]
     Route: 064
  2. IMURAN [Concomitant]
     Route: 064
  3. PREDNISOLONE [Concomitant]
     Route: 064
  4. APRESOLINE [Concomitant]

REACTIONS (4)
  - Foetal distress syndrome [Recovered/Resolved]
  - Neonatal asphyxia [Recovered/Resolved]
  - Premature baby [Unknown]
  - Exposure during pregnancy [Unknown]
